FAERS Safety Report 4435997-7 (Version None)
Quarter: 2004Q3

REPORT INFORMATION
  Report Type: 
  Country: None (occurrence: None)
  Receive Date: 20040826
  Receipt Date: 20040817
  Transmission Date: 20050211
  Serious: No
  Sender: FDA-Public Use
  Company Number: 2004UW11794

PATIENT
  Age: 22 Year
  Sex: Female
  Weight: 68.0396 kg

DRUGS (9)
  1. SEROQUEL [Suspect]
     Indication: HALLUCINATION
     Dosage: 300 MG PO
     Route: 048
     Dates: start: 20000101
  2. SEROQUEL [Suspect]
     Indication: PARANOIA
     Dosage: 300 MG PO
     Route: 048
     Dates: start: 20000101
  3. SEROQUEL [Suspect]
     Indication: SCHIZOAFFECTIVE DISORDER
     Dosage: 300 MG PO
     Route: 048
     Dates: start: 20000101
  4. SEROQUEL [Suspect]
     Indication: HALLUCINATION
     Dosage: 25 TO 50 MG PER DAY
     Dates: start: 20031208
  5. SEROQUEL [Suspect]
     Indication: PARANOIA
     Dosage: 25 TO 50 MG PER DAY
     Dates: start: 20031208
  6. SEROQUEL [Suspect]
     Indication: SCHIZOAFFECTIVE DISORDER
     Dosage: 25 TO 50 MG PER DAY
     Dates: start: 20031208
  7. ZOLOFT [Suspect]
     Indication: ANXIETY
     Dosage: 100 MG DAILY
  8. ZOLOFT [Suspect]
     Indication: DEPRESSION
     Dosage: 100 MG DAILY
  9. PRENATAL VITAMINS [Concomitant]

REACTIONS (3)
  - DRUG EXPOSURE DURING PREGNANCY [None]
  - PREGNANCY [None]
  - PREMATURE LABOUR [None]
